FAERS Safety Report 7563420-2 (Version None)
Quarter: 2011Q2

REPORT INFORMATION
  Report Type: 
  Country: None (occurrence: None)
  Receive Date: 20110622
  Receipt Date: 20110615
  Transmission Date: 20111010
  Serious: Yes (Other)
  Sender: FDA-Public Use
  Company Number: B0722336A

PATIENT
  Sex: Female
  Weight: 65 kg

DRUGS (3)
  1. TYKERB [Suspect]
     Dosage: 1000MG PER DAY
     Route: 048
     Dates: start: 20100422, end: 20100725
  2. TYKERB [Suspect]
     Indication: BREAST CANCER
     Dosage: 1250MG PER DAY
     Route: 048
     Dates: start: 20100401, end: 20100421
  3. LETROZOLE [Concomitant]
     Indication: BREAST CANCER
     Dosage: 1IUAX PER DAY
     Dates: end: 20100725

REACTIONS (2)
  - ORAL MUCOSA EROSION [None]
  - RASH [None]
